FAERS Safety Report 17368379 (Version 1)
Quarter: 2020Q1

REPORT INFORMATION
  Report Type: Spontaneous
  Country: US (occurrence: US)
  Receive Date: 20200204
  Receipt Date: 20200204
  Transmission Date: 20200409
  Serious: Yes (Hospitalization)
  Sender: FDA-Public Use
  Company Number: US-TEVA-2020-US-1178876

PATIENT
  Age: 2 Year
  Sex: Female

DRUGS (3)
  1. CLONIDINE. [Suspect]
     Active Substance: CLONIDINE
     Indication: WITHDRAWAL SYNDROME
     Dosage: INADVERTENTLY RECEIVED A 10-FOLD INCREASE IN HER PRESCRIBED DOSE OF CLONIDINE
     Route: 065
  2. MORPHINE [Concomitant]
     Active Substance: MORPHINE
     Route: 065
  3. LORAZEPAM. [Concomitant]
     Active Substance: LORAZEPAM
     Route: 065

REACTIONS (11)
  - Hypothermia [Unknown]
  - Accidental overdose [Unknown]
  - Heart rate increased [Unknown]
  - Product administration error [Unknown]
  - Toxicity to various agents [Unknown]
  - Bradycardia [Unknown]
  - Miosis [Unknown]
  - Respiratory depression [Unknown]
  - Hypotension [Unknown]
  - Mental status changes [Recovering/Resolving]
  - Depression [Unknown]
